FAERS Safety Report 18094315 (Version 2)
Quarter: 2020Q3

REPORT INFORMATION
  Report Type: Spontaneous
  Country: CA (occurrence: CA)
  Receive Date: 20200730
  Receipt Date: 20200805
  Transmission Date: 20201103
  Serious: Yes (Other)
  Sender: FDA-Public Use
  Company Number: CA-PFIZER INC-2020289182

PATIENT
  Age: 68 Year
  Sex: Male

DRUGS (2)
  1. HYDROXYCHLOROQUINE [Suspect]
     Active Substance: HYDROXYCHLOROQUINE
     Dosage: 400 MG, 1X/DAY
     Dates: start: 20150112
  2. SULFASALAZINE. [Suspect]
     Active Substance: SULFASALAZINE
     Dosage: 2500 MG, TWICE A DAY (1500 MG IN THE MORNING AND 1000 MG IN THE AFTERNOON)
     Dates: start: 20150112

REACTIONS (4)
  - Hypertension [Unknown]
  - Drug ineffective [Unknown]
  - Arthralgia [Unknown]
  - Pulmonary fibrosis [Unknown]
